FAERS Safety Report 6967845-5 (Version None)
Quarter: 2010Q3

REPORT INFORMATION
  Report Type: 
  Country: None (occurrence: None)
  Receive Date: 20100907
  Receipt Date: 20100301
  Transmission Date: 20110219
  Serious: No
  Sender: FDA-Public Use
  Company Number: A0845729A

PATIENT
  Age: 62 Year
  Sex: Male

DRUGS (5)
  1. REQUIP [Suspect]
     Indication: RESTLESS LEGS SYNDROME
     Dosage: 2MG PER DAY
     Route: 048
     Dates: start: 20060101
  2. COZAAR [Concomitant]
  3. M.V.I. [Concomitant]
  4. TIMOPTIC [Concomitant]
  5. UNKNOWN MEDICATION [Concomitant]

REACTIONS (3)
  - MUSCLE TWITCHING [None]
  - RESTLESS LEGS SYNDROME [None]
  - TREMOR [None]
